FAERS Safety Report 18060882 (Version 1)
Quarter: 2020Q3

REPORT INFORMATION
  Report Type: Spontaneous
  Country: NO (occurrence: NO)
  Receive Date: 20200723
  Receipt Date: 20200723
  Transmission Date: 20201103
  Serious: Yes (Other)
  Sender: FDA-Public Use
  Company Number: NO-MYLANLABS-2020M1066230

PATIENT
  Age: 56 Year
  Sex: Female

DRUGS (1)
  1. EPINEPHRINE. [Suspect]
     Active Substance: EPINEPHRINE
     Indication: PRODUCT USED FOR UNKNOWN INDICATION
     Dosage: SHE RECEIVED GROSSLY ERRONEOUS MEDICAL TREATMENT WITH RACEMIC..
     Route: 042

REACTIONS (11)
  - Fatigue [Unknown]
  - Hypertension [Unknown]
  - Disturbance in attention [Unknown]
  - Nightmare [Recovering/Resolving]
  - Insomnia [Unknown]
  - Seizure [Unknown]
  - Incorrect route of product administration [Recovering/Resolving]
  - Tachycardia [Unknown]
  - Nervousness [Unknown]
  - Injury [Unknown]
  - Post-traumatic stress disorder [Recovering/Resolving]
